FAERS Safety Report 5657527-4 (Version None)
Quarter: 2008Q1

REPORT INFORMATION
  Report Type: 
  Country: None (occurrence: None)
  Receive Date: 20080310
  Receipt Date: 20080303
  Transmission Date: 20080703
  Serious: Yes (Life-Threatening, Hospitalization)
  Sender: FDA-Public Use
  Company Number: FR-PFIZER INC-2008019310

PATIENT
  Age: 55 Year
  Sex: Male

DRUGS (11)
  1. ATARAX [Suspect]
     Dosage: DAILY DOSE:150MG-FREQ:DAILY
     Route: 048
  2. NOZINAN [Suspect]
     Indication: SCHIZOPHRENIA
     Dosage: DAILY DOSE:275DROP-FREQ:DAILY
     Route: 048
  3. TRANXENE [Suspect]
     Dosage: DAILY DOSE:120MG-FREQ:DAILY
     Route: 048
  4. PARKINANE [Suspect]
     Dosage: DAILY DOSE:10MG-FREQ:DAILY
     Route: 048
  5. MEPRONIZINE [Suspect]
     Dosage: TEXT:1U-FREQ:DAILY
     Route: 048
  6. ZYPREXA [Suspect]
     Dosage: DAILY DOSE:20MG-FREQ:DAILY
     Route: 048
  7. COZAAR [Concomitant]
     Dosage: TEXT:1 U-FREQ:DAILY
     Route: 048
  8. SULFARLEM [Concomitant]
     Dosage: TEXT:6 U-FREQ:DAILY
     Route: 048
  9. CORVASAL [Concomitant]
     Dosage: TEXT:6 U-FREQ:DAILY
     Route: 048
  10. DEPAKOTE [Concomitant]
     Dosage: DAILY DOSE:2000MG-FREQ:DAILY
     Route: 048
  11. INIPOMP [Concomitant]
     Dosage: DAILY DOSE:40MG-FREQ:DAILY
     Route: 048

REACTIONS (6)
  - ACIDOSIS [None]
  - ACUTE RESPIRATORY DISTRESS SYNDROME [None]
  - INTESTINAL ISCHAEMIA [None]
  - INTESTINAL OBSTRUCTION [None]
  - PNEUMONIA ASPIRATION [None]
  - SEPTIC SHOCK [None]
